FAERS Safety Report 8588473-4 (Version None)
Quarter: 2012Q3

REPORT INFORMATION
  Report Type: 
  Country: None (occurrence: None)
  Receive Date: 20120731
  Receipt Date: 20120724
  Transmission Date: 20120928
  Serious: Yes (Other)
  Sender: FDA-Public Use
  Company Number: CIP-2012-00247

PATIENT
  Sex: Female

DRUGS (6)
  1. PACLITAXEL [Suspect]
     Indication: FALLOPIAN TUBE CANCER
     Dosage: SEE IMAGE
     Route: 042
  2. PACLITAXEL [Suspect]
     Indication: OVARIAN CANCER
     Dosage: SEE IMAGE
     Route: 042
  3. PACLITAXEL [Suspect]
     Indication: MALIGNANT PERITONEAL NEOPLASM
     Dosage: SEE IMAGE
     Route: 042
  4. CARBOPLATIN [Suspect]
     Indication: OVARIAN CANCER
     Dosage: AUC 6 RECONSTITUTED
  5. CARBOPLATIN [Suspect]
     Indication: FALLOPIAN TUBE CANCER
     Dosage: AUC 6 RECONSTITUTED
  6. CARBOPLATIN [Suspect]
     Indication: MALIGNANT PERITONEAL NEOPLASM
     Dosage: AUC 6 RECONSTITUTED

REACTIONS (1)
  - NEUTROPHIL COUNT ABNORMAL [None]
